FAERS Safety Report 19804089 (Version 3)
Quarter: 2022Q3

REPORT INFORMATION
  Report Type: Spontaneous
  Country: CN (occurrence: CN)
  Receive Date: 20210908
  Receipt Date: 20220708
  Transmission Date: 20221026
  Serious: Yes (Other)
  Sender: FDA-Public Use
  Company Number: CN-PFIZER INC-202101155659

PATIENT
  Age: 64 Year
  Sex: Male

DRUGS (2)
  1. MEROPENEM [Interacting]
     Active Substance: MEROPENEM
     Indication: Infection
     Dosage: 3 G, 3X/DAY
     Route: 041
  2. VALPROATE SODIUM [Interacting]
     Active Substance: VALPROATE SODIUM
     Dosage: UNK

REACTIONS (3)
  - Epilepsy [Unknown]
  - Labelled drug-drug interaction issue [Unknown]
  - Labelled drug-drug interaction medication error [Unknown]
